FAERS Safety Report 16964998 (Version 1)
Quarter: 2019Q4

REPORT INFORMATION
  Report Type: Report from Study
  Country: US (occurrence: US)
  Receive Date: 20191028
  Receipt Date: 20191028
  Transmission Date: 20200122
  Serious: Yes (Death)
  Sender: FDA-Public Use
  Company Number: US-ASTRAZENECA-2019SF51916

PATIENT
  Age: 31283 Day
  Sex: Female

DRUGS (10)
  1. LEVOTHYROXINE SODIUM. [Concomitant]
     Active Substance: LEVOTHYROXINE SODIUM
  2. POTASSIUM [Concomitant]
     Active Substance: POTASSIUM
  3. ANASTROZOLE. [Concomitant]
     Active Substance: ANASTROZOLE
  4. SOTALOL. [Concomitant]
     Active Substance: SOTALOL
  5. ATORVASTATIN CALCIUM. [Concomitant]
     Active Substance: ATORVASTATIN CALCIUM
  6. SPIRONOLACTONE-HCTZ [Concomitant]
     Active Substance: HYDROCHLOROTHIAZIDE\SPIRONOLACTONE
  7. AMOXICILLIN. [Concomitant]
     Active Substance: AMOXICILLIN
  8. CALCIUM [Concomitant]
     Active Substance: CALCIUM
  9. LOSARTAN-HYDROCHLOROTHIAZIDE [Concomitant]
     Active Substance: HYDROCHLOROTHIAZIDE\LOSARTAN
  10. TAGRISSO [Suspect]
     Active Substance: OSIMERTINIB
     Route: 048
     Dates: start: 20190724

REACTIONS (1)
  - Death [Fatal]

NARRATIVE: CASE EVENT DATE: 20191020
